FAERS Safety Report 9699898 (Version 1)
Quarter: 2013Q4

REPORT INFORMATION
  Report Type: Spontaneous
  Country: TH (occurrence: TH)
  Receive Date: 20131121
  Receipt Date: 20131121
  Transmission Date: 20140711
  Serious: Yes (Other)
  Sender: FDA-Public Use
  Company Number: PHHY2013TH130512

PATIENT
  Age: 42 Year
  Sex: Female

DRUGS (3)
  1. METHOTREXATE [Suspect]
     Indication: ECTOPIC PREGNANCY
     Dosage: 50 MG/M2, UNK
     Route: 030
  2. FOLINIC ACID [Suspect]
  3. POTASSIUM CHLORIDE [Suspect]
     Indication: ECTOPIC PREGNANCY

REACTIONS (6)
  - Cervix haemorrhage uterine [Recovering/Resolving]
  - Vaginal haemorrhage [Recovering/Resolving]
  - Hypovolaemic shock [Recovering/Resolving]
  - Disseminated intravascular coagulation [Recovering/Resolving]
  - Renal tubular necrosis [Recovering/Resolving]
  - Maternal exposure during pregnancy [Unknown]
